FAERS Safety Report 23429792 (Version 8)
Quarter: 2024Q4

REPORT INFORMATION
  Report Type: Spontaneous
  Country: US (occurrence: US)
  Receive Date: 20240122
  Receipt Date: 20241004
  Transmission Date: 20250114
  Serious: Yes (Other)
  Sender: BRISTOL MYERS SQUIBB
  Company Number: US-BRISTOL-MYERS SQUIBB COMPANY-2024-010798

PATIENT
  Age: 78 Year
  Sex: Male

DRUGS (5)
  1. LENALIDOMIDE [Suspect]
     Active Substance: LENALIDOMIDE
     Indication: Malignant neoplasm of spinal cord
     Dosage: TAKE 1 CAPSULE (5MG TOTAL) BY MOUTH EVERY DAY FOR 14 DAYS, THEN 7 DAYS OFF
     Route: 048
     Dates: start: 20221019
  2. LENALIDOMIDE [Suspect]
     Active Substance: LENALIDOMIDE
     Dosage: TAKE 1 CAPSULE BY MOUTH DAILY FOR 14 DAYS, THEN 7 DAYS OFF
     Route: 048
     Dates: start: 20221019
  3. LENALIDOMIDE [Suspect]
     Active Substance: LENALIDOMIDE
     Dosage: TAKE 1 CAPSULE BY MOUTH DAILY FOR 14 DAYS, THEN 7 DAYS OFF
     Route: 048
  4. LENALIDOMIDE [Suspect]
     Active Substance: LENALIDOMIDE
     Dosage: TAKE 1 CAPSULE (5MG) BY MOUTH EVERY DAY FOR 14 DAYS, THEN 7 DAYS OFF
     Route: 048
  5. LENALIDOMIDE [Suspect]
     Active Substance: LENALIDOMIDE
     Dosage: TAKE 1 CAPSULE (5MG) BY MOUTH EVERY DAY FOR 14 DAYS, THEN 7 DAYS OFF
     Route: 048

REACTIONS (9)
  - Influenza [Recovered/Resolved]
  - Off label use [Unknown]
  - Respiratory tract infection [Recovered/Resolved]
  - Product dose omission issue [Unknown]
  - Pruritus [Recovering/Resolving]
  - Gastrointestinal disorder [Recovering/Resolving]
  - Product dose omission in error [Unknown]
  - Renal disorder [Unknown]
  - Condition aggravated [Unknown]
